FAERS Safety Report 9375181 (Version 2)
Quarter: 2013Q3

REPORT INFORMATION
  Report Type: Spontaneous
  Country: US (occurrence: US)
  Receive Date: 20130628
  Receipt Date: 20130701
  Transmission Date: 20140515
  Serious: Yes (Hospitalization)
  Sender: FDA-Public Use
  Company Number: US-ABBOTT-13P-163-1109042-00

PATIENT
  Age: 17 Year
  Sex: Male
  Weight: 42.22 kg

DRUGS (4)
  1. DEPAKOTE SPRINKLE [Suspect]
     Indication: CONVULSION
     Dosage: SPRINKLE
     Dates: end: 2013
  2. TOPAMAX [Concomitant]
     Indication: CONVULSION
  3. BACLOFEN [Concomitant]
     Indication: MUSCLE RELAXANT THERAPY
  4. DIAZEPAM [Concomitant]
     Indication: MUSCLE RELAXANT THERAPY

REACTIONS (3)
  - Diet refusal [Not Recovered/Not Resolved]
  - Vomiting [Recovered/Resolved]
  - Pneumonia [Recovered/Resolved]
